FAERS Safety Report 24780130 (Version 1)
Quarter: 2024Q4

REPORT INFORMATION
  Report Type: Spontaneous
  Country: CA (occurrence: CA)
  Receive Date: 20241227
  Receipt Date: 20241227
  Transmission Date: 20250115
  Serious: Yes (Other)
  Sender: CELLTRION
  Company Number: CA-PFIZER INC-202400330103

PATIENT

DRUGS (8)
  1. INFLECTRA [Suspect]
     Active Substance: INFLIXIMAB-DYYB
     Indication: Colitis ulcerative
     Dosage: UNK
     Route: 042
     Dates: start: 20241023
  2. INFLECTRA [Suspect]
     Active Substance: INFLIXIMAB-DYYB
     Dosage: 840 MG, EVERY 8 WEEKS
     Route: 042
     Dates: start: 20241218
  3. AMLODIPINE [Concomitant]
     Active Substance: AMLODIPINE BESYLATE
     Dosage: 1 DF
     Route: 065
  4. AMITRIPTYLINE [Concomitant]
     Active Substance: AMITRIPTYLINE
     Dosage: 1 DF
     Route: 065
  5. CITALOPRAM [Concomitant]
     Active Substance: CITALOPRAM
     Dosage: 1 DF
     Route: 065
  6. TELMISARTAN [Concomitant]
     Active Substance: TELMISARTAN
     Dosage: 1 DF
     Route: 065
  7. CORTISONE [Concomitant]
     Active Substance: CORTISONE
     Dosage: 1 DF
     Route: 065
  8. OZEMPIC [Concomitant]
     Active Substance: SEMAGLUTIDE
     Indication: Weight control

REACTIONS (1)
  - Abdominal hernia [Recovered/Resolved]
